FAERS Safety Report 18469696 (Version 3)
Quarter: 2020Q4

REPORT INFORMATION
  Report Type: Spontaneous
  Country: US (occurrence: US)
  Receive Date: 20201105
  Receipt Date: 20201124
  Transmission Date: 20210114
  Serious: No
  Sender: FDA-Public Use
  Company Number: US-SA-2020SA306828

PATIENT

DRUGS (1)
  1. LANTUS [Suspect]
     Active Substance: INSULIN GLARGINE
     Indication: TYPE 2 DIABETES MELLITUS
     Dosage: SLIDING SCALE AT NIGHT, QD
     Route: 065

REACTIONS (5)
  - Suspected product quality issue [Unknown]
  - Product storage error [Unknown]
  - Injection site pain [Unknown]
  - Blood glucose increased [Unknown]
  - Product preparation error [Unknown]
